FAERS Safety Report 10429903 (Version 1)
Quarter: 2014Q3

REPORT INFORMATION
  Report Type: Spontaneous
  Country: US (occurrence: US)
  Receive Date: 20140904
  Receipt Date: 20140904
  Transmission Date: 20150326
  Serious: Yes (Hospitalization)
  Sender: FDA-Public Use
  Company Number: US-SA-2014SA118755

PATIENT
  Age: 64 Year
  Sex: Female

DRUGS (6)
  1. SOLOSTAR [Concomitant]
     Active Substance: DEVICE
     Indication: TYPE 1 DIABETES MELLITUS
  2. APIDRA [Suspect]
     Active Substance: INSULIN GLULISINE
     Indication: TYPE 1 DIABETES MELLITUS
     Dosage: THERAPY START DATE REPORTED AS ^FOR YEARS^ DOSE:2 UNIT(S)
     Route: 065
     Dates: start: 2014
  3. LANTUS SOLOSTAR [Suspect]
     Active Substance: INSULIN GLARGINE
     Indication: TYPE 1 DIABETES MELLITUS
     Dosage: THERAPY START DATE REPORTED AS ^FOR YEARS^ DOSE:8 UNIT(S)
     Route: 065
     Dates: end: 2014
  4. LANTUS SOLOSTAR [Suspect]
     Active Substance: INSULIN GLARGINE
     Indication: TYPE 1 DIABETES MELLITUS
     Dosage: THERAPY START DATE REPORTED AS ^FOR YEARS^ DOSE:8 UNIT(S)
     Route: 065
     Dates: start: 2014
  5. LIDOCAINE. [Concomitant]
     Active Substance: LIDOCAINE
     Dosage: PATCH
  6. APIDRA [Suspect]
     Active Substance: INSULIN GLULISINE
     Indication: TYPE 1 DIABETES MELLITUS
     Dosage: THERAPY START DATE REPORTED AS ^FOR YEARS^ DOSE:2 UNIT(S)
     Route: 065
     Dates: end: 2014

REACTIONS (7)
  - Dysphagia [Unknown]
  - Gastrooesophageal reflux disease [Unknown]
  - Injection site bruising [Unknown]
  - Injection site haemorrhage [Unknown]
  - Hiatus hernia [Unknown]
  - Incorrect product storage [Unknown]
  - Blood glucose abnormal [Not Recovered/Not Resolved]

NARRATIVE: CASE EVENT DATE: 2014
